FAERS Safety Report 9619480 (Version 1)
Quarter: 2013Q4

REPORT INFORMATION
  Report Type: Spontaneous
  Country: US (occurrence: US)
  Receive Date: 20131014
  Receipt Date: 20131014
  Transmission Date: 20140711
  Serious: No
  Sender: FDA-Public Use
  Company Number: US-009507513-1310USA005658

PATIENT
  Sex: Female

DRUGS (1)
  1. EMEND [Suspect]
     Dosage: 80 MG, UNK

REACTIONS (3)
  - Tremor [Unknown]
  - Insomnia [Unknown]
  - Nervousness [Unknown]
